FAERS Safety Report 16295283 (Version 1)
Quarter: 2019Q2

REPORT INFORMATION
  Report Type: Spontaneous
  Country: GB (occurrence: GB)
  Receive Date: 20190509
  Receipt Date: 20190509
  Transmission Date: 20190711
  Serious: Yes (Disabling)
  Sender: FDA-Public Use
  Company Number: GB-TEVA-2019-GB-1047541

PATIENT
  Age: 84 Year
  Sex: Female
  Weight: 92 kg

DRUGS (12)
  1. MIRTAZAPINE. [Concomitant]
     Active Substance: MIRTAZAPINE
     Dosage: BEDTIME.
     Dates: start: 20180814
  2. CHLORPHENAMINE [Concomitant]
     Active Substance: CHLORPHENIRAMINE MALEATE
     Dosage: TAKE ONE TABLET EVERY FOUR TO SIX HOURS.
     Dates: start: 20190402
  3. INSTILLAGEL [Concomitant]
     Active Substance: CHLORHEXIDINE GLUCONATE\LIDOCAINE HYDROCHLORIDE
     Dosage: USE AS DIRECTED
     Dates: start: 20181206
  4. CONOTRANE [Concomitant]
     Dosage: APPLY 3-4 TIMES DAILY
     Dates: start: 20190121, end: 20190128
  5. METHENAMINE HIPPURATE. [Concomitant]
     Active Substance: METHENAMINE HIPPURATE
     Dates: start: 20180814
  6. BISOPROLOL [Concomitant]
     Active Substance: BISOPROLOL
     Dates: start: 20180814
  7. NITRAZEPAM [Concomitant]
     Active Substance: NITRAZEPAM
     Dosage: NIGHT
     Dates: start: 20180814
  8. NITROFURANTOIN. [Suspect]
     Active Substance: NITROFURANTOIN
     Dates: start: 20190404
  9. DULOXETINE. [Concomitant]
     Active Substance: DULOXETINE
     Dates: start: 20180814
  10. ALENDRONIC ACID [Concomitant]
     Active Substance: ALENDRONIC ACID
     Dosage: ON A SATURDAY
     Dates: start: 20180814
  11. LEVOTHYROXINE. [Concomitant]
     Active Substance: LEVOTHYROXINE
     Dates: start: 20180814
  12. OMEPRAZOLE. [Concomitant]
     Active Substance: OMEPRAZOLE
     Dates: start: 20180814

REACTIONS (2)
  - Rash generalised [Recovering/Resolving]
  - Pruritus [Unknown]

NARRATIVE: CASE EVENT DATE: 20190404
